FAERS Safety Report 8200312-X (Version None)
Quarter: 2012Q1

REPORT INFORMATION
  Report Type: 
  Country: None (occurrence: None)
  Receive Date: 20120306
  Receipt Date: 20120221
  Transmission Date: 20120608
  Serious: Yes (Life-Threatening, Hospitalization)
  Sender: FDA-Public Use
  Company Number: 1209041

PATIENT
  Age: 48 Year
  Sex: Female
  Weight: 44.4525 kg

DRUGS (7)
  1. CODEINE SULFATE [Concomitant]
  2. PIPERACILLIN AND TAZOBACTAM [Suspect]
     Indication: SEPSIS
     Dosage: 1 KBQ KILOBECQUEREL(S), 1 DAY, INTRAVENOUS (NOT  OTHERWISE SPECIFIED)
     Route: 042
     Dates: start: 20111106, end: 20111124
  3. FERROUS SULFATE TAB [Concomitant]
  4. ACETAMINOPHEN [Concomitant]
  5. DALTEPARIN SODIUM [Concomitant]
  6. FOLIC ACID [Concomitant]
  7. CYCLIZINE [Concomitant]

REACTIONS (2)
  - WITHDRAWAL SYNDROME [None]
  - THROMBOCYTOPENIA [None]
